FAERS Safety Report 7029771-5 (Version None)
Quarter: 2010Q4

REPORT INFORMATION
  Report Type: 
  Country: None (occurrence: None)
  Receive Date: 20101005
  Receipt Date: 20100929
  Transmission Date: 20110411
  Serious: Yes (Death, Life-Threatening, Hospitalization)
  Sender: FDA-Public Use
  Company Number: JP-BRISTOL-MYERS SQUIBB COMPANY-15314651

PATIENT
  Age: 63 Year
  Sex: Male
  Weight: 58 kg

DRUGS (9)
  1. SPRYCEL [Suspect]
     Indication: ACUTE LYMPHOCYTIC LEUKAEMIA
     Dosage: 70MGX2:16JUL09-20JUL09; 100MG:26JUL09-03FEB10; 70MG:03MAR10-09MAR10; 100MG:10MAR10-16MAY10
     Route: 048
     Dates: start: 20090716
  2. CYTARABINE [Suspect]
     Indication: ACUTE LYMPHOCYTIC LEUKAEMIA
     Dosage: 4700MG:ON 15FEB10 120MG:24APR10-26APR10 150MG:24MAY10-26MAY10
     Route: 042
     Dates: start: 20100215, end: 20100526
  3. METHOTREXATE [Suspect]
     Indication: ACUTE LYMPHOCYTIC LEUKAEMIA
     Route: 042
     Dates: start: 20100216
  4. OMEPRAL [Concomitant]
     Indication: PROPHYLAXIS
     Dosage: TABLET FORM
     Route: 048
     Dates: end: 20100618
  5. VFEND [Concomitant]
     Dosage: FORM: TAB 1 DF= 400-200MG/DAY
     Route: 048
     Dates: end: 20100618
  6. SALOBEL [Concomitant]
     Indication: PROPHYLAXIS
     Dosage: FORM: TAB
     Route: 048
     Dates: end: 20100618
  7. PREDONINE [Concomitant]
     Indication: ACUTE LYMPHOCYTIC LEUKAEMIA RECURRENT
     Route: 048
     Dates: start: 20090716, end: 20100420
  8. DECADRON [Concomitant]
     Indication: ACUTE LYMPHOCYTIC LEUKAEMIA RECURRENT
     Dosage: INJECTION
     Route: 042
     Dates: start: 20100123, end: 20100126
  9. METHYLPREDNISOLONE SODIUM SUCCINATE [Concomitant]
     Indication: ACUTE LYMPHOCYTIC LEUKAEMIA RECURRENT
     Dosage: INJECTION
     Route: 042
     Dates: start: 20100215, end: 20100216

REACTIONS (7)
  - ACUTE LYMPHOCYTIC LEUKAEMIA [None]
  - BONE MARROW FAILURE [None]
  - CYTOMEGALOVIRUS ENTEROCOLITIS [None]
  - GASTROINTESTINAL PERFORATION [None]
  - MALIGNANT NEOPLASM PROGRESSION [None]
  - NEUTROPHIL COUNT DECREASED [None]
  - WHITE BLOOD CELL COUNT DECREASED [None]
